FAERS Safety Report 5454084-2 (Version None)
Quarter: 2007Q3

REPORT INFORMATION
  Report Type: 
  Country: None (occurrence: None)
  Receive Date: 20070917
  Receipt Date: 20070228
  Transmission Date: 20080115
  Serious: Yes (Other)
  Sender: FDA-Public Use
  Company Number: US-ASTRAZENECA-2006UW09862

PATIENT
  Age: 30 Year
  Sex: Male
  Weight: 97.7 kg

DRUGS (6)
  1. SEROQUEL [Suspect]
     Indication: SCHIZOPHRENIA, PARANOID TYPE
     Route: 048
     Dates: start: 20030127, end: 20040518
  2. SEROQUEL [Suspect]
     Route: 048
     Dates: start: 20040624, end: 20040713
  3. SEROQUEL [Suspect]
     Route: 048
     Dates: start: 20040713
  4. ABILIFY [Concomitant]
  5. HALDOL [Concomitant]
  6. RISPERDAL [Concomitant]

REACTIONS (3)
  - DIABETIC KETOACIDOSIS [None]
  - TYPE 1 DIABETES MELLITUS [None]
  - TYPE 2 DIABETES MELLITUS [None]
